FAERS Safety Report 4620881-6 (Version None)
Quarter: 2005Q1

REPORT INFORMATION
  Report Type: 
  Country: None (occurrence: None)
  Receive Date: 20050325
  Receipt Date: 20050314
  Transmission Date: 20050727
  Serious: Yes (Hospitalization)
  Sender: FDA-Public Use
  Company Number: 2005-126558-NL

PATIENT
  Age: 54 Year
  Sex: Male

DRUGS (3)
  1. MIRTAZAPINE [Suspect]
     Dosage: 60 DF; ORAL
     Route: 048
     Dates: end: 20050213
  2. BROMAZEPAM [Suspect]
     Dosage: 20 DF, ORAL
     Route: 048
     Dates: end: 20050213
  3. ZOPICLONE [Suspect]
     Dosage: 20 DF, ORAL
     Route: 048
     Dates: end: 20050213

REACTIONS (5)
  - AMNESIA [None]
  - ANXIETY [None]
  - OVERDOSE [None]
  - SOMNOLENCE [None]
  - VERTIGO [None]
